FAERS Safety Report 19010465 (Version 2)
Quarter: 2021Q1

REPORT INFORMATION
  Report Type: Spontaneous
  Country: BR (occurrence: BR)
  Receive Date: 20210315
  Receipt Date: 20210324
  Transmission Date: 20210420
  Serious: Yes (Death, Hospitalization, Other)
  Sender: FDA-Public Use
  Company Number: BR-SA-2021SA082244

PATIENT
  Age: 46 Year
  Sex: Male
  Weight: 73 kg

DRUGS (16)
  1. ATORVASTATIN [Concomitant]
     Active Substance: ATORVASTATIN
     Dosage: 10 MG, QD
  2. BISACODYL. [Concomitant]
     Active Substance: BISACODYL
     Dosage: 01 COMP 1X / DAY
  3. CEFAZOLIN [Suspect]
     Active Substance: CEFAZOLIN
     Indication: ANTIBIOTIC PROPHYLAXIS
     Dosage: 1 G, TID
     Route: 042
     Dates: start: 20210303
  4. CLONAZEPAM. [Concomitant]
     Active Substance: CLONAZEPAM
     Dosage: 2 MG, HS
  5. THYMOGLOBULINE [Suspect]
     Active Substance: LAPINE T-LYMPHOCYTE IMMUNE GLOBULIN
     Dosage: 225 MG, QD
     Dates: start: 20210303, end: 20210304
  6. HYDROCORTISONE SALT NOT SPECIFIED [Suspect]
     Active Substance: HYDROCORTISONE
     Indication: PROPHYLAXIS
     Dosage: 300 MG, QD
     Route: 042
     Dates: start: 20210303
  7. OMEPRAZOLE. [Suspect]
     Active Substance: OMEPRAZOLE
     Indication: GASTRITIS PROPHYLAXIS
     Dosage: 40 MG, QD
     Route: 042
     Dates: start: 20210303
  8. INSULIN, REGULAR [Suspect]
     Active Substance: INSULIN NOS
     Indication: DIABETES MELLITUS MANAGEMENT
     Dosage: 1IU
     Route: 058
     Dates: start: 20210303
  9. PLASIL [METOCLOPRAMIDE] [Concomitant]
     Active Substance: METOCLOPRAMIDE
     Dosage: 10 MG, QD
  10. VONAU [Concomitant]
     Active Substance: ONDANSETRON HYDROCHLORIDE
     Dosage: 4 MG, QD
  11. AAS [Concomitant]
     Active Substance: ASPIRIN
     Dosage: 200MG 12 / 12H
  12. PANTOPRAZOLE [Concomitant]
     Active Substance: PANTOPRAZOLE
     Dosage: 40MG 12 / 12H
  13. METAMIZOLE SODIUM [Suspect]
     Active Substance: METAMIZOLE SODIUM
     Indication: PROPHYLAXIS
     Dosage: 500 MG / ML 2 ML, 1 AMPOULE ONCE A DAY
     Route: 042
     Dates: start: 20210303
  14. QUETIAPINE. [Concomitant]
     Active Substance: QUETIAPINE
     Dosage: 25 MG, HS
  15. FRUSEMIDE [FUROSEMIDE] [Concomitant]
     Active Substance: FUROSEMIDE
     Dosage: 80 MG, BID
  16. ELIFOR [Concomitant]
     Dosage: 50 MG, QD

REACTIONS (7)
  - Multiple organ dysfunction syndrome [Fatal]
  - Tachycardia [Not Recovered/Not Resolved]
  - Cyanosis [Not Recovered/Not Resolved]
  - Oxygen saturation decreased [Not Recovered/Not Resolved]
  - Tachypnoea [Not Recovered/Not Resolved]
  - Anaphylactic shock [Not Recovered/Not Resolved]
  - Shock [Fatal]

NARRATIVE: CASE EVENT DATE: 20210304
